FAERS Safety Report 5362850-7 (Version None)
Quarter: 2007Q2

REPORT INFORMATION
  Report Type: 
  Country: None (occurrence: None)
  Receive Date: 20070619
  Receipt Date: 20070606
  Transmission Date: 20071010
  Serious: Yes (Hospitalization)
  Sender: FDA-Public Use
  Company Number: JP-PFIZER INC-2007048959

PATIENT
  Age: 75 Year
  Sex: Male

DRUGS (5)
  1. IRINOTECAN HCL [Suspect]
     Dosage: DAILY DOSE:180MG
     Dates: start: 20070507, end: 20070521
  2. LEUCOVORIN CALCIUM [Suspect]
     Dosage: DAILY DOSE:400MG
     Dates: start: 20070507, end: 20070521
  3. FLUOROURACIL [Suspect]
     Dosage: DAILY DOSE:500MG
     Route: 042
     Dates: start: 20070507, end: 20070521
  4. FLUOROURACIL [Suspect]
     Dosage: DAILY DOSE:2000MG
     Dates: start: 20070507, end: 20070521
  5. DECADRON [Concomitant]
     Indication: PREMEDICATION
     Dates: start: 20070507, end: 20070521

REACTIONS (1)
  - GASTRIC ULCER HAEMORRHAGE [None]
